FAERS Safety Report 9986000 (Version 1)
Quarter: 2014Q1

REPORT INFORMATION
  Report Type: Report from Study
  Country: US (occurrence: US)
  Receive Date: 20140307
  Receipt Date: 20140307
  Transmission Date: 20141002
  Serious: No
  Sender: FDA-Public Use
  Company Number: US-ABBVIE-13P-163-1086871-00

PATIENT
  Age: 31 Year
  Sex: Female

DRUGS (10)
  1. HUMIRA [Suspect]
     Indication: CROHN^S DISEASE
     Route: 058
     Dates: start: 20130421, end: 20130421
  2. HUMIRA [Suspect]
     Route: 058
     Dates: start: 20130505, end: 20130505
  3. HUMIRA [Suspect]
     Route: 058
  4. LIALDA [Concomitant]
     Indication: PRODUCT USED FOR UNKNOWN INDICATION
     Dosage: 4.8MG DAILY
  5. PREDNISONE [Concomitant]
     Indication: PRODUCT USED FOR UNKNOWN INDICATION
     Dosage: 15MG DAILY
  6. AZATHIOPRINE [Concomitant]
     Indication: CROHN^S DISEASE
     Dosage: 150MG DAILY
  7. VALACYCLOVIR [Concomitant]
     Indication: PROPHYLAXIS
     Dosage: 500MG DAILY
  8. VALACYCLOVIR [Concomitant]
     Indication: HERPES SIMPLEX
  9. HYDROCODONE [Concomitant]
     Indication: PAIN
  10. CLORAZEPATE [Concomitant]
     Indication: ANXIETY

REACTIONS (2)
  - Injection site haemorrhage [Recovering/Resolving]
  - Injection site bruising [Recovering/Resolving]
